FAERS Safety Report 14987067 (Version 3)
Quarter: 2018Q3

REPORT INFORMATION
  Report Type: Spontaneous
  Country: US (occurrence: US)
  Receive Date: 20180608
  Receipt Date: 20180812
  Transmission Date: 20181010
  Serious: No
  Sender: FDA-Public Use
  Company Number: US-JNJFOC-20180532391

PATIENT
  Sex: Male

DRUGS (16)
  1. CALCIUM [Concomitant]
     Active Substance: CALCIUM
  2. IMBRUVICA [Suspect]
     Active Substance: IBRUTINIB
     Indication: MANTLE CELL LYMPHOMA
     Dosage: 560 MG, QD
     Route: 048
     Dates: start: 20180323, end: 201804
  3. IMBRUVICA [Suspect]
     Active Substance: IBRUTINIB
     Indication: MANTLE CELL LYMPHOMA
     Dosage: 560 MG, QD
     Route: 048
     Dates: start: 20180417, end: 2018
  4. ALLOPURINOL. [Concomitant]
     Active Substance: ALLOPURINOL
  5. ACYCLOVIR. [Concomitant]
     Active Substance: ACYCLOVIR
  6. VITAMIN D3 [Concomitant]
     Active Substance: CHOLECALCIFEROL
  7. ASPIRIN. [Concomitant]
     Active Substance: ASPIRIN
     Dosage: 81 MG, UNK
  8. LISINOPRIL. [Concomitant]
     Active Substance: LISINOPRIL
  9. COQ10 [Concomitant]
     Active Substance: UBIDECARENONE
  10. FISH OIL [Concomitant]
     Active Substance: FISH OIL
  11. LEVOTHYROXINE. [Concomitant]
     Active Substance: LEVOTHYROXINE
  12. METFORMIN [Concomitant]
     Active Substance: METFORMIN HYDROCHLORIDE
  13. SIMVASTATIN. [Concomitant]
     Active Substance: SIMVASTATIN
  14. ASCORBIC ACID. [Concomitant]
     Active Substance: ASCORBIC ACID
  15. GLUCOSAMINE [Concomitant]
     Active Substance: GLUCOSAMINE
  16. LORATADINE. [Concomitant]
     Active Substance: LORATADINE

REACTIONS (2)
  - Drug ineffective [Unknown]
  - Lymphocyte count increased [Unknown]

NARRATIVE: CASE EVENT DATE: 2018
